FAERS Safety Report 5858219-9 (Version None)
Quarter: 2008Q3

REPORT INFORMATION
  Report Type: 
  Country: None (occurrence: None)
  Receive Date: 20080826
  Receipt Date: 20080820
  Transmission Date: 20090109
  Serious: Yes (Hospitalization)
  Sender: FDA-Public Use
  Company Number: A0733501A

PATIENT
  Age: 44 Year
  Sex: Male
  Weight: 113.6 kg

DRUGS (14)
  1. AVANDIA [Suspect]
     Dosage: 4MG TWICE PER DAY
     Route: 048
     Dates: end: 20070501
  2. AVANDAMET [Suspect]
     Dosage: 1TAB TWICE PER DAY
     Route: 048
  3. BUSPIRONE HCL [Concomitant]
  4. CARDIZEM [Concomitant]
  5. FUROSEMIDE [Concomitant]
  6. LEVOTHYROXINE [Concomitant]
  7. METFORMIN HCL [Concomitant]
  8. LIPITOR [Concomitant]
  9. ALTACE [Concomitant]
  10. AMITRIPTYLINE HCL [Concomitant]
  11. ASPIRIN [Concomitant]
  12. ATENOLOL [Concomitant]
  13. VYTORIN [Concomitant]
  14. HYZAAR [Concomitant]

REACTIONS (2)
  - ATRIAL FIBRILLATION [None]
  - CARDIAC FAILURE CONGESTIVE [None]
